FAERS Safety Report 15620078 (Version 1)
Quarter: 2018Q4

REPORT INFORMATION
  Report Type: Spontaneous
  Country: SA (occurrence: SA)
  Receive Date: 20181115
  Receipt Date: 20181115
  Transmission Date: 20190205
  Serious: Yes (Other)
  Sender: FDA-Public Use
  Company Number: SA-ACCORD-092582

PATIENT
  Age: 27 Year
  Sex: Male

DRUGS (6)
  1. CYTARABINE/CYTARABINE HYDROCHLORIDE/CYTARABINE OCFOSFATE [Suspect]
     Active Substance: CYTARABINE
     Indication: MYCOSIS FUNGOIDES
     Dates: end: 201403
  2. DOXORUBICIN [Suspect]
     Active Substance: DOXORUBICIN
     Indication: MYCOSIS FUNGOIDES
     Dates: end: 201403
  3. DEXAMETHASONE. [Suspect]
     Active Substance: DEXAMETHASONE
     Indication: MYCOSIS FUNGOIDES
     Dates: end: 201403
  4. METHOTREXATE. [Suspect]
     Active Substance: METHOTREXATE
     Indication: MYCOSIS FUNGOIDES
     Dates: end: 201403
  5. CYCLOPHOSPHAMIDE/CYCLOPHOSPHAMIDE MONOHYDRATE [Suspect]
     Active Substance: CYCLOPHOSPHAMIDE
     Indication: MYCOSIS FUNGOIDES
     Dates: end: 201403
  6. VINCRISTINE [Suspect]
     Active Substance: VINCRISTINE
     Indication: MYCOSIS FUNGOIDES
     Dates: end: 201403

REACTIONS (1)
  - Febrile neutropenia [Recovered/Resolved]
